FAERS Safety Report 8136509-7 (Version None)
Quarter: 2012Q1

REPORT INFORMATION
  Report Type: 
  Country: None (occurrence: None)
  Receive Date: 20120214
  Receipt Date: 20120202
  Transmission Date: 20120608
  Serious: Yes (Other)
  Sender: FDA-Public Use
  Company Number: PHHY2012BD011823

PATIENT
  Sex: Male

DRUGS (1)
  1. SEBIVO [Suspect]
     Indication: HEPATITIS B
     Route: 048

REACTIONS (4)
  - NEUROMYOPATHY [None]
  - MUSCULAR WEAKNESS [None]
  - GENERAL PHYSICAL HEALTH DETERIORATION [None]
  - DECREASED APPETITE [None]
